FAERS Safety Report 17744746 (Version 1)
Quarter: 2020Q2

REPORT INFORMATION
  Report Type: Spontaneous
  Country: US (occurrence: US)
  Receive Date: 20200504
  Receipt Date: 20200504
  Transmission Date: 20200714
  Serious: Yes (Hospitalization)
  Sender: FDA-Public Use
  Company Number: None

PATIENT
  Age: 71 Year
  Sex: Male
  Weight: 102.33 kg

DRUGS (8)
  1. MELATONIN 3MG [Concomitant]
  2. SYNTHROID [Concomitant]
     Active Substance: LEVOTHYROXINE SODIUM
  3. PEMBROLIZUMAB, 200MG [Suspect]
     Active Substance: PEMBROLIZUMAB
     Indication: PROSTATE CANCER
     Dosage: ?          OTHER FREQUENCY:Q3W;OTHER ROUTE:IV?
     Dates: start: 20191115, end: 20200207
  4. ENZALUTAMIDE, 160MG [Suspect]
     Active Substance: ENZALUTAMIDE
     Dosage: ?          OTHER FREQUENCY:SID;?
     Route: 048
     Dates: start: 20191115, end: 20200316
  5. SERTRALINE [Concomitant]
     Active Substance: SERTRALINE HYDROCHLORIDE
  6. LEUPROLIDE (ELIGARD) [Concomitant]
  7. TRAZADONE TAB 100MG [Concomitant]
  8. PREDNISONE. [Concomitant]
     Active Substance: PREDNISONE

REACTIONS (1)
  - Diarrhoea [None]

NARRATIVE: CASE EVENT DATE: 20200427
